FAERS Safety Report 4819518-2 (Version None)
Quarter: 2005Q4

REPORT INFORMATION
  Report Type: 
  Country: None (occurrence: None)
  Receive Date: 20051103
  Receipt Date: 20050916
  Transmission Date: 20060501
  Serious: Yes (Other)
  Sender: FDA-Public Use
  Company Number: 2005UW13762

PATIENT
  Age: 55 Year
  Sex: Female
  Weight: 85 kg

DRUGS (4)
  1. CRESTOR [Suspect]
     Indication: BLOOD CHOLESTEROL INCREASED
     Route: 048
     Dates: start: 20050812, end: 20050903
  2. PREMPRO [Concomitant]
     Dosage: 0.625/2.5 MG
  3. LEVSINEX [Concomitant]
  4. DYAZIDE [Concomitant]
     Dosage: 37.5/25 MG

REACTIONS (5)
  - ATRIOVENTRICULAR BLOCK COMPLETE [None]
  - CARDIOMEGALY [None]
  - CONDUCTION DISORDER [None]
  - DYSPNOEA [None]
  - MYALGIA [None]
